FAERS Safety Report 6904253-7 (Version None)
Quarter: 2010Q3

REPORT INFORMATION
  Report Type: 
  Country: None (occurrence: None)
  Receive Date: 20100804
  Receipt Date: 20090408
  Transmission Date: 20110219
  Serious: Yes (Other)
  Sender: FDA-Public Use
  Company Number: US-PFIZER INC-2009167517

PATIENT
  Sex: Female
  Weight: 85.714 kg

DRUGS (7)
  1. LYRICA [Suspect]
     Indication: HERPES ZOSTER
     Dosage: 75 MG, 2X/DAY
     Dates: start: 20090122
  2. LYRICA [Suspect]
     Indication: POST HERPETIC NEURALGIA
  3. GLYBURIDE [Concomitant]
     Dosage: UNK
  4. FUROSEMIDE [Concomitant]
     Dosage: UNK
  5. LISINOPRIL [Concomitant]
     Dosage: UNK
  6. ACETYLSALICYLIC ACID [Concomitant]
     Dosage: UNK
  7. GEMFIBROZIL [Concomitant]
     Dosage: UNK

REACTIONS (3)
  - DIZZINESS [None]
  - HERPES ZOSTER [None]
  - NAUSEA [None]
